FAERS Safety Report 7717587-3 (Version None)
Quarter: 2011Q3

REPORT INFORMATION
  Report Type: 
  Country: None (occurrence: None)
  Receive Date: 20110830
  Receipt Date: 20110823
  Transmission Date: 20111222
  Serious: Yes (Hospitalization, Other)
  Sender: FDA-Public Use
  Company Number: US-AMGEN-USASP2011030217

PATIENT
  Age: 73 Year
  Sex: Female
  Weight: 54.875 kg

DRUGS (2)
  1. IMMUNOSUPPRESSANTS [Concomitant]
  2. PROLIA [Suspect]
     Indication: OSTEOPOROSIS POSTMENOPAUSAL
     Dosage: 60 MG, Q6MO
     Route: 030
     Dates: start: 20110505

REACTIONS (5)
  - ABASIA [None]
  - HYPOCALCAEMIA [None]
  - DIARRHOEA [None]
  - MUSCULAR WEAKNESS [None]
  - INCORRECT ROUTE OF DRUG ADMINISTRATION [None]
